FAERS Safety Report 13896547 (Version 1)
Quarter: 2017Q3

REPORT INFORMATION
  Report Type: Spontaneous
  Country: AU (occurrence: AU)
  Receive Date: 20170823
  Receipt Date: 20170823
  Transmission Date: 20171127
  Serious: Yes (Hospitalization, Other)
  Sender: FDA-Public Use
  Company Number: AU-APOTEX-2017AP017229

PATIENT
  Age: 40 Year
  Sex: Male

DRUGS (2)
  1. GENRX ALLOPURINOL [Suspect]
     Active Substance: ALLOPURINOL
     Indication: BLOOD URIC ACID INCREASED
  2. GENRX ALLOPURINOL [Suspect]
     Active Substance: ALLOPURINOL
     Indication: ARTHRITIS
     Route: 065

REACTIONS (9)
  - Drug reaction with eosinophilia and systemic symptoms [Unknown]
  - Acute kidney injury [Unknown]
  - Liver injury [Unknown]
  - Histiocytosis haematophagic [Unknown]
  - Rhabdomyolysis [Unknown]
  - Lymphocytosis [Unknown]
  - Pancytopenia [Recovered/Resolved]
  - Epstein-Barr virus infection [Unknown]
  - Cytomegalovirus infection [Unknown]
